FAERS Safety Report 4950316-5 (Version None)
Quarter: 2006Q1

REPORT INFORMATION
  Report Type: 
  Country: None (occurrence: None)
  Receive Date: 20060322
  Receipt Date: 20060313
  Transmission Date: 20060701
  Serious: Yes (Life-Threatening, Hospitalization)
  Sender: FDA-Public Use
  Company Number: GB-JNJFOC-20060303382

PATIENT
  Age: 66 Year
  Sex: Female

DRUGS (15)
  1. REMICADE [Suspect]
     Indication: RHEUMATOID ARTHRITIS
     Route: 042
  2. HUMULIN [Concomitant]
     Route: 065
  3. HUMULIN [Concomitant]
     Dosage: 30 IU AM AND 20 IU PM
     Route: 065
  4. AMOXICILLIN + CLAVULANATE POTASSIUM [Concomitant]
     Route: 065
  5. AMOXICILLIN + CLAVULANATE POTASSIUM [Concomitant]
     Route: 065
  6. PREDNISOLONE [Concomitant]
     Route: 065
  7. GABAPENTIN [Concomitant]
     Route: 065
  8. OMEPRAZOLE [Concomitant]
     Route: 065
  9. FOLIC ACID [Concomitant]
     Route: 065
  10. METHOTREXATE [Concomitant]
     Route: 065
  11. RISEDRONIC ACID [Concomitant]
     Route: 065
  12. ATORVASTATIN CALCIUM [Concomitant]
     Route: 065
  13. CALCICHEW D3 [Concomitant]
     Route: 065
  14. PERINDOPRIL [Concomitant]
     Route: 065
  15. ASCORBIC ACID [Concomitant]
     Route: 065

REACTIONS (2)
  - KLEBSIELLA SEPSIS [None]
  - RENAL FAILURE [None]
